FAERS Safety Report 6700646-1 (Version None)
Quarter: 2010Q2

REPORT INFORMATION
  Report Type: 
  Country: None (occurrence: None)
  Receive Date: 20100428
  Receipt Date: 20100419
  Transmission Date: 20101027
  Serious: No
  Sender: FDA-Public Use
  Company Number: US-B.I. PHARMACEUTICALS,INC./RIDGEFIELD-2010-BP-04480BP

PATIENT
  Sex: Female

DRUGS (3)
  1. MIRAPEX [Suspect]
     Indication: RESTLESS LEGS SYNDROME
     Dosage: 0.25 MG
     Route: 048
     Dates: start: 20100201, end: 20100418
  2. CLONOPIN [Concomitant]
     Indication: PERIODIC LIMB MOVEMENT DISORDER
  3. TENORMIN [Concomitant]
     Indication: HYPERTENSION

REACTIONS (2)
  - BRONCHITIS [None]
  - RESTLESS LEGS SYNDROME [None]
